FAERS Safety Report 5078123-6 (Version None)
Quarter: 2006Q3

REPORT INFORMATION
  Report Type: 
  Country: None (occurrence: None)
  Receive Date: 20060811
  Receipt Date: 20060801
  Transmission Date: 20061208
  Serious: Yes (Other)
  Sender: FDA-Public Use
  Company Number: FR-ABBOTT-06P-056-0339327-00

PATIENT
  Age: 38 Year
  Sex: Female

DRUGS (7)
  1. CYCLOSPORINE [Suspect]
     Indication: PROPHYLAXIS AGAINST TRANSPLANT REJECTION
     Dosage: ADJUSTED ON TROUGH LEVELS
  2. CYCLOSPORINE [Suspect]
     Dosage: NOT REPORTED
  3. TACROLIMUS [Suspect]
     Indication: PROPHYLAXIS AGAINST TRANSPLANT REJECTION
     Dosage: NOT REPORTED
  4. TACROLIMUS [Suspect]
     Dosage: NOT REPORTED
  5. AZATHIOPRINE SODIUM [Concomitant]
     Indication: PROPHYLAXIS AGAINST TRANSPLANT REJECTION
  6. CORTICOSTEROIDS [Concomitant]
     Indication: PROPHYLAXIS AGAINST TRANSPLANT REJECTION
  7. ANTITHYMOCYTE IMMUNOGLOBULIN [Concomitant]
     Indication: PROPHYLAXIS AGAINST TRANSPLANT REJECTION
     Dosage: NOT REPORTED

REACTIONS (2)
  - PULMONARY ALVEOLAR HAEMORRHAGE [None]
  - THROMBOTIC MICROANGIOPATHY [None]
